FAERS Safety Report 10960291 (Version 1)
Quarter: 2015Q1

REPORT INFORMATION
  Report Type: Spontaneous
  Country: None (occurrence: None)
  Receive Date: 20150325
  Receipt Date: 20150325
  Transmission Date: 20150721
  Serious: No
  Sender: FDA-Public Use
  Company Number: 251544420150001

PATIENT
  Age: 9 Month

DRUGS (1)
  1. BANANA BOAT SPORT PERFORMANCE SPF 15 [Suspect]
     Active Substance: AVOBENZONE\HOMOSALATE\OCTINOXATE\OCTISALATE\OCTOCRYLENE\OXYBENZONE
     Indication: PROPHYLAXIS AGAINST SOLAR RADIATION
     Dosage: NO DOSAGE LIMITATIONS
     Dates: start: 201501

REACTIONS (4)
  - Erythema [None]
  - Blister [None]
  - Accidental exposure to product [None]
  - Burns second degree [None]

NARRATIVE: CASE EVENT DATE: 20150115
